FAERS Safety Report 9516606 (Version 1)
Quarter: 2013Q3

REPORT INFORMATION
  Report Type: Spontaneous
  Country: US (occurrence: US)
  Receive Date: 20130911
  Receipt Date: 20130911
  Transmission Date: 20140515
  Serious: No
  Sender: FDA-Public Use
  Company Number: US-BAYER-2013-108043

PATIENT
  Age: 57 Year
  Sex: Female

DRUGS (3)
  1. ESTRADIOL HEMIHYDRATE (PATCH) [Suspect]
     Dosage: UNK
     Route: 062
     Dates: start: 20130815
  2. ESTRADIOL HEMIHYDRATE (PATCH) [Suspect]
     Dosage: UNK
     Route: 062
  3. ESTRADIOL HEMIHYDRATE (PATCH) [Suspect]
     Dosage: UNK
     Route: 062

REACTIONS (2)
  - Application site rash [Not Recovered/Not Resolved]
  - Dermatitis contact [None]
